FAERS Safety Report 9245005 (Version 1)
Quarter: 2013Q1

REPORT INFORMATION
  Report Type: Spontaneous
  Country: US (occurrence: None)
  Receive Date: 20121123
  Receipt Date: 20121123
  Transmission Date: 20140127
  Serious: No
  Sender: FDA-Public Use
  Company Number: 359143

PATIENT
  Age: 52 Year
  Sex: Male
  Weight: 136.1 kg

DRUGS (1)
  1. VICTOZA (LIRAGLUTIDE) SOLUTION FOR INJECTION, 6MG/ML [Suspect]
     Indication: TYPE 2 DIABETES MELLITUS
     Route: 058
     Dates: start: 201201

REACTIONS (4)
  - Drug ineffective [None]
  - Weight loss poor [None]
  - Increased appetite [None]
  - Diabetes mellitus inadequate control [None]
